FAERS Safety Report 6841063-3 (Version None)
Quarter: 2010Q3

REPORT INFORMATION
  Report Type: 
  Country: None (occurrence: None)
  Receive Date: 20100714
  Receipt Date: 20070623
  Transmission Date: 20110219
  Serious: No
  Sender: FDA-Public Use
  Company Number: US-PFIZER INC-2007052799

PATIENT
  Sex: Female
  Weight: 74.8 kg

DRUGS (6)
  1. CHANTIX [Suspect]
     Indication: SMOKING CESSATION THERAPY
     Dates: start: 20070531
  2. PREVACID [Concomitant]
     Indication: GASTROOESOPHAGEAL REFLUX DISEASE
  3. KLONOPIN [Concomitant]
     Indication: BIPOLAR DISORDER
  4. TRAZODONE HYDROCHLORIDE [Concomitant]
     Indication: SLEEP DISORDER
  5. TOPROL-XL [Concomitant]
  6. CAPTOPRIL [Concomitant]

REACTIONS (6)
  - ABDOMINAL DISCOMFORT [None]
  - DYSPNOEA [None]
  - EYELID FUNCTION DISORDER [None]
  - HEADACHE [None]
  - MALAISE [None]
  - RESPIRATORY TRACT CONGESTION [None]
